FAERS Safety Report 4947760-9 (Version None)
Quarter: 2006Q1

REPORT INFORMATION
  Report Type: 
  Country: None (occurrence: None)
  Receive Date: 20060310
  Receipt Date: 20060307
  Transmission Date: 20060701
  Serious: Yes (Other)
  Sender: FDA-Public Use
  Company Number: 805#1#2006-00010

PATIENT
  Age: 15 Day
  Sex: Male

DRUGS (10)
  1. ALPROSTADIL [Suspect]
     Indication: HEART DISEASE CONGENITAL
     Dosage: INTRAVENOUS DRIP
     Route: 041
     Dates: start: 20050623, end: 20050711
  2. ... [Suspect]
  3. DOPAMINE HCL [Concomitant]
     Dates: start: 20050623, end: 20050708
  4. SULTAMICILLIN TOSILATE (AMPICILLIN SODIUM, SULBACTAM SODIUM) [Concomitant]
  5. MIDAZOLAM HCL [Concomitant]
  6. FENTANYL CITRATE [Concomitant]
  7. VECURONIUM BROMIDE [Concomitant]
  8. FUROSEMIDE [Concomitant]
  9. FLOMOXEF SODIUM (FLOMOXEF SODIUM) [Concomitant]
  10. SPIRONOLACTONE [Concomitant]

REACTIONS (1)
  - NEONATAL TACHYPNOEA [None]
